FAERS Safety Report 19511796 (Version 2)
Quarter: 2022Q1

REPORT INFORMATION
  Report Type: Spontaneous
  Country: AU (occurrence: AU)
  Receive Date: 20210709
  Receipt Date: 20220120
  Transmission Date: 20220423
  Serious: Yes (Death, Life-Threatening, Hospitalization, Other)
  Sender: FDA-Public Use
  Company Number: AU-JNJFOC-20210630004

PATIENT
  Age: 68 Year
  Sex: Male

DRUGS (5)
  1. DILTIAZEM [Interacting]
     Active Substance: DILTIAZEM
     Indication: Atrial fibrillation
     Route: 048
  2. IBRUTINIB [Interacting]
     Active Substance: IBRUTINIB
     Indication: Mantle cell lymphoma
  3. DIGOXIN [Concomitant]
     Active Substance: DIGOXIN
     Indication: Atrial fibrillation
  4. RIVAROXABAN [Concomitant]
     Active Substance: RIVAROXABAN
     Indication: Pulmonary embolism
  5. METOPROLOL [Concomitant]
     Active Substance: METOPROLOL
     Indication: Atrial fibrillation

REACTIONS (5)
  - Cardiotoxicity [Fatal]
  - Arrhythmia [Fatal]
  - Cardiac arrest [Fatal]
  - Drug interaction [Fatal]
  - Nervous system disorder [Fatal]
